FAERS Safety Report 10262470 (Version 2)
Quarter: 2014Q2

REPORT INFORMATION
  Report Type: Spontaneous
  Country: GB (occurrence: GB)
  Receive Date: 20140626
  Receipt Date: 20140626
  Transmission Date: 20141212
  Serious: Yes (Life-Threatening, Hospitalization, Other)
  Sender: FDA-Public Use
  Company Number: PHFR2013GB006917

PATIENT
  Age: 39 Year
  Sex: Female

DRUGS (2)
  1. CLOZARIL [Suspect]
     Indication: SCHIZOPHRENIA
     Dosage: 400 MG
     Route: 048
     Dates: start: 20050511
  2. CLOZARIL [Suspect]
     Dosage: DOSE REDUCED
     Route: 048

REACTIONS (6)
  - Antipsychotic drug level increased [Recovered/Resolved]
  - Tuberculosis [Unknown]
  - Pneumonia [Unknown]
  - Differential white blood cell count abnormal [Unknown]
  - White blood cell count increased [Unknown]
  - Neutrophil count increased [Unknown]
